FAERS Safety Report 7134554-1 (Version None)
Quarter: 2010Q4

REPORT INFORMATION
  Report Type: 
  Country: None (occurrence: None)
  Receive Date: 20101129
  Receipt Date: 20101129
  Transmission Date: 20110411
  Serious: No
  Sender: FDA-Public Use
  Company Number: None

PATIENT
  Age: 76 Year
  Sex: Female
  Weight: 70.7611 kg

DRUGS (1)
  1. NEURONTIN [Suspect]

REACTIONS (2)
  - DEPRESSION [None]
  - THERAPY CESSATION [None]
